FAERS Safety Report 5344056-0 (Version None)
Quarter: 2007Q2

REPORT INFORMATION
  Report Type: 
  Country: None (occurrence: None)
  Receive Date: 20070604
  Receipt Date: 20070530
  Transmission Date: 20071010
  Serious: Yes (Other)
  Sender: FDA-Public Use
  Company Number: A0653767A

PATIENT
  Sex: Female

DRUGS (1)
  1. ADVAIR DISKUS 100/50 [Suspect]
     Indication: DRUG USE FOR UNKNOWN INDICATION
     Route: 055

REACTIONS (11)
  - CHEST DISCOMFORT [None]
  - DRY EYE [None]
  - DRY MOUTH [None]
  - DRY SKIN [None]
  - DYSPNOEA [None]
  - PAIN [None]
  - PHARYNGOLARYNGEAL PAIN [None]
  - RASH [None]
  - SKIN BURNING SENSATION [None]
  - THROAT IRRITATION [None]
  - VISUAL DISTURBANCE [None]
